FAERS Safety Report 8852373 (Version 3)
Quarter: 2012Q4

REPORT INFORMATION
  Report Type: 
  Country: US (occurrence: US)
  Receive Date: 20121022
  Receipt Date: 20121127
  Transmission Date: 20130627
  Serious: Yes (Hospitalization, Other)
  Sender: FDA-Public Use
  Company Number: US-PFIZER INC-2012256651

PATIENT
  Age: 70 Year
  Sex: Female
  Weight: 40.7 kg

DRUGS (7)
  1. BLINDED CELECOXIB [Suspect]
     Indication: ADENOCARCINOMA OF COLON
     Dosage: starting on day 1 of cycle 2 of FOLFOX for 3 years
     Route: 048
     Dates: start: 20120222, end: 20120226
  2. BLINDED NO SUBJECT DRUG [Suspect]
     Indication: ADENOCARCINOMA OF COLON
     Dosage: starting on day 1 of cycle 2 of FOLFOX for 3 years
     Route: 048
     Dates: start: 20120222, end: 20120226
  3. BLINDED PLACEBO [Suspect]
     Indication: ADENOCARCINOMA OF COLON
     Dosage: starting on day 1 of cycle 2 of FOLFOX for 3 years
     Route: 048
     Dates: start: 20120222, end: 20120226
  4. FLUOROURACIL [Suspect]
     Indication: COLON CANCER
     Dosage: 400 mg/m2 IVP on day 1
     Route: 040
     Dates: start: 20120208
  5. FLUOROURACIL [Suspect]
     Dosage: 2400 mg/m2 IV over 46-48 hours on day 1
     Route: 042
     Dates: start: 20120208
  6. ELOXATIN [Suspect]
     Indication: COLON CANCER
     Dosage: 85 mg/m2, over 2 hours on day 1
     Route: 042
     Dates: start: 20120208
  7. LEUCOVORIN CALCIUM [Concomitant]
     Indication: ADENOCARCINOMA OF COLON
     Dosage: 400 mg/m2, over 2 hours on day 1
     Route: 042
     Dates: start: 20120208

REACTIONS (2)
  - Embolism [Unknown]
  - Colitis [Unknown]
